FAERS Safety Report 7257296-0 (Version None)
Quarter: 2011Q1

REPORT INFORMATION
  Report Type: 
  Country: None (occurrence: None)
  Receive Date: 20110129
  Receipt Date: 20100628
  Transmission Date: 20110831
  Serious: No
  Sender: FDA-Public Use
  Company Number: US-ABBOTT-10P-163-0654179-00

PATIENT
  Sex: Female

DRUGS (2)
  1. CALAMINE LOTION [Concomitant]
     Indication: HERPES ZOSTER
     Route: 061
  2. HUMIRA [Suspect]
     Indication: RHEUMATOID ARTHRITIS
     Route: 058
     Dates: start: 20100615, end: 20100615

REACTIONS (3)
  - HERPES ZOSTER [None]
  - RASH ERYTHEMATOUS [None]
  - PRURITUS [None]
